FAERS Safety Report 8574399-9 (Version None)
Quarter: 2012Q3

REPORT INFORMATION
  Report Type: 
  Country: None (occurrence: None)
  Receive Date: 20120806
  Receipt Date: 20120802
  Transmission Date: 20120928
  Serious: Yes (Hospitalization)
  Sender: FDA-Public Use
  Company Number: BR-ROCHE-780181

PATIENT
  Sex: Female
  Weight: 66 kg

DRUGS (9)
  1. CALCIUM [Concomitant]
  2. ACTONEL [Concomitant]
  3. MABTHERA [Suspect]
     Indication: PRODUCT USED FOR UNKNOWN INDICATION
     Route: 042
     Dates: start: 20090901, end: 20091001
  4. ACTEMRA [Suspect]
     Indication: RHEUMATOID ARTHRITIS
     Dates: start: 20120214
  5. METHOTREXATE [Concomitant]
     Route: 048
  6. MABTHERA [Suspect]
     Route: 042
     Dates: start: 20100801, end: 20100801
  7. ATACAND [Concomitant]
  8. ATENOLOL [Concomitant]
  9. DEFLAZACORT [Concomitant]
     Dosage: DRUG NAME: DEFLAZOCORT

REACTIONS (7)
  - FEMUR FRACTURE [None]
  - RHEUMATOID ARTHRITIS [None]
  - GAIT DISTURBANCE [None]
  - ARTHRALGIA [None]
  - HIP FRACTURE [None]
  - DYSSTASIA [None]
  - OEDEMA PERIPHERAL [None]
